FAERS Safety Report 4784742-4 (Version None)
Quarter: 2005Q3

REPORT INFORMATION
  Report Type: 
  Country: None (occurrence: None)
  Receive Date: 20050930
  Receipt Date: 20050921
  Transmission Date: 20060218
  Serious: Yes (Hospitalization)
  Sender: FDA-Public Use
  Company Number: FR-ROCHE-418627

PATIENT
  Sex: Female

DRUGS (3)
  1. CLONAZEPAM [Suspect]
     Indication: EPILEPSY
     Dates: end: 20050820
  2. SPECIAFOLDINE [Concomitant]
     Dates: end: 20050820
  3. LAMICTAL [Concomitant]
     Indication: EPILEPSY
     Dates: end: 20050820

REACTIONS (4)
  - DRUG EXPOSURE DURING PREGNANCY [None]
  - PREMATURE BABY [None]
  - RESPIRATORY DISTRESS [None]
  - TALIPES [None]
